FAERS Safety Report 6499810-9 (Version None)
Quarter: 2009Q4

REPORT INFORMATION
  Report Type: 
  Country: None (occurrence: None)
  Receive Date: 20091214
  Receipt Date: 20040204
  Transmission Date: 20100525
  Serious: Yes (Hospitalization)
  Sender: FDA-Public Use
  Company Number: 2009EN000299

PATIENT
  Age: 20 Year
  Sex: Male
  Weight: 58 kg

DRUGS (4)
  1. ABELCET [Suspect]
     Indication: COCCIDIOIDOMYCOSIS
     Dosage: 290 MG, QD, IV
     Route: 042
  2. AMBISOME [Suspect]
     Indication: COCCIDIOIDOMYCOSIS
     Dosage: 45 MG, QD, IV
     Route: 042
  3. AMBISOME [Suspect]
     Indication: COCCIDIOIDOMYCOSIS
     Dosage: 290 MG, QD, IV
     Route: 042
  4. FLUCONAZOLE [Concomitant]

REACTIONS (14)
  - BLOOD CREATININE INCREASED [None]
  - CONGESTIVE CARDIOMYOPATHY [None]
  - DILATATION VENTRICULAR [None]
  - DRUG TOXICITY [None]
  - DYSPNOEA [None]
  - EJECTION FRACTION DECREASED [None]
  - HEART SOUNDS ABNORMAL [None]
  - LEFT ATRIAL DILATATION [None]
  - OSTEOMYELITIS [None]
  - PURULENCE [None]
  - PYREXIA [None]
  - RALES [None]
  - RIGHT ATRIAL DILATATION [None]
  - SKIN LESION [None]
